FAERS Safety Report 6284166-7 (Version None)
Quarter: 2009Q3

REPORT INFORMATION
  Report Type: 
  Country: None (occurrence: None)
  Receive Date: 20090727
  Receipt Date: 20090716
  Transmission Date: 20100115
  Serious: Yes (Other)
  Sender: FDA-Public Use
  Company Number: GB-JNJFOC-20090406209

PATIENT
  Sex: Female
  Weight: 65 kg

DRUGS (13)
  1. REMICADE [Suspect]
     Route: 042
  2. REMICADE [Suspect]
     Indication: JUVENILE ARTHRITIS
     Route: 042
  3. METHOTREXATE [Concomitant]
  4. PREDNISOLONE [Concomitant]
  5. CALCITRIOL [Concomitant]
  6. FOLIC ACID [Concomitant]
  7. OMEPRAZOLE [Concomitant]
  8. PROVERA [Concomitant]
  9. VOLTAREN [Concomitant]
  10. ACTONEL [Concomitant]
  11. OXYCONTIN [Concomitant]
  12. LYRICA [Concomitant]
  13. TRAMADOL [Concomitant]

REACTIONS (3)
  - DEVICE RELATED INFECTION [None]
  - FEMUR FRACTURE [None]
  - POST PROCEDURAL COMPLICATION [None]
